FAERS Safety Report 20145542 (Version 1)
Quarter: 2021Q4

REPORT INFORMATION
  Report Type: Report from Study
  Country: US (occurrence: US)
  Receive Date: 20211203
  Receipt Date: 20211203
  Transmission Date: 20220303
  Serious: Yes (Hospitalization, Other)
  Sender: FDA-Public Use
  Company Number: US-TAKEDA-US201802618

PATIENT
  Age: 20 Year
  Sex: Male
  Weight: 60 kg

DRUGS (8)
  1. TEDUGLUTIDE [Suspect]
     Active Substance: TEDUGLUTIDE
     Indication: Product used for unknown indication
     Dosage: STUDY DRUG NOT ADMINISTERED
     Route: 065
     Dates: start: 20160120
  2. TEDUGLUTIDE [Suspect]
     Active Substance: TEDUGLUTIDE
     Indication: Product used for unknown indication
     Dosage: STUDY DRUG NOT ADMINISTERED
     Route: 065
     Dates: start: 20160120
  3. TEDUGLUTIDE [Suspect]
     Active Substance: TEDUGLUTIDE
     Indication: Product used for unknown indication
     Dosage: STUDY DRUG NOT ADMINISTERED
     Route: 065
     Dates: start: 20160120
  4. TEDUGLUTIDE [Suspect]
     Active Substance: TEDUGLUTIDE
     Indication: Product used for unknown indication
     Dosage: STUDY DRUG NOT ADMINISTERED
     Route: 065
     Dates: start: 20160120
  5. PROBENECID [Concomitant]
     Active Substance: PROBENECID
     Indication: Product used for unknown indication
  6. KEFLEX                             /00145501/ [Concomitant]
     Indication: Bacteraemia
  7. ROCEPHIN [Concomitant]
     Active Substance: CEFTRIAXONE SODIUM
     Indication: Bacteraemia
  8. FERROUS GLUCONATE [Concomitant]
     Active Substance: FERROUS GLUCONATE
     Indication: Glucose-6-phosphate dehydrogenase deficiency

REACTIONS (1)
  - Bacteraemia [Recovered/Resolved]

NARRATIVE: CASE EVENT DATE: 20170118
